FAERS Safety Report 18355299 (Version 2)
Quarter: 2020Q4

REPORT INFORMATION
  Report Type: Spontaneous
  Country: US (occurrence: US)
  Receive Date: 20201007
  Receipt Date: 20201104
  Transmission Date: 20210114
  Serious: No
  Sender: FDA-Public Use
  Company Number: US-ASTRAZENECA-2020SF17701

PATIENT
  Age: 70 Year
  Sex: Female

DRUGS (3)
  1. BYDUREON BCISE [Suspect]
     Active Substance: EXENATIDE
     Route: 058
     Dates: start: 2020
  2. FOSAMAX [Concomitant]
     Active Substance: ALENDRONATE SODIUM
  3. BYDUREON [Suspect]
     Active Substance: EXENATIDE
     Route: 058
     Dates: start: 2018

REACTIONS (6)
  - Injection site pain [Unknown]
  - Memory impairment [Unknown]
  - Glycosylated haemoglobin decreased [Unknown]
  - Product physical issue [Unknown]
  - Injection site bruising [Unknown]
  - Needle issue [Unknown]
